FAERS Safety Report 18517225 (Version 1)
Quarter: 2020Q4

REPORT INFORMATION
  Report Type: Spontaneous
  Country: SI (occurrence: SI)
  Receive Date: 20201118
  Receipt Date: 20201118
  Transmission Date: 20210114
  Serious: Yes (Other)
  Sender: FDA-Public Use
  Company Number: SI-BAYER-2020-228168

PATIENT
  Age: 37 Year
  Sex: Female

DRUGS (1)
  1. CIPROBAY 500 MG [Suspect]
     Active Substance: CIPROFLOXACIN
     Indication: URETHRITIS NONINFECTIVE
     Dosage: UNK
     Route: 048
     Dates: start: 202009

REACTIONS (7)
  - Abdominal pain [Unknown]
  - Nausea [Unknown]
  - Tremor [Unknown]
  - Chills [Unknown]
  - Gastrointestinal inflammation [Unknown]
  - Diarrhoea [Unknown]
  - Pyrexia [Unknown]

NARRATIVE: CASE EVENT DATE: 2020
